FAERS Safety Report 8109050-5 (Version None)
Quarter: 2012Q1

REPORT INFORMATION
  Report Type: 
  Country: None (occurrence: None)
  Receive Date: 20120202
  Receipt Date: 20120125
  Transmission Date: 20120608
  Serious: Yes (Hospitalization, Other)
  Sender: FDA-Public Use
  Company Number: DE-TEVA-319296GER

PATIENT
  Sex: Male
  Weight: 3.7 kg

DRUGS (9)
  1. AMITRIPTYLINE HCL [Concomitant]
     Route: 064
     Dates: start: 20101126, end: 20110104
  2. OXYCODONE HCL [Suspect]
     Route: 064
     Dates: start: 20101126, end: 20110822
  3. SERTRALINE HYDROCHLORIDE [Suspect]
     Route: 064
     Dates: start: 20110107, end: 20110822
  4. ESCITALOPRAM [Concomitant]
     Route: 064
     Dates: start: 20101126, end: 20110104
  5. MORPHINE SULFATE [Concomitant]
     Route: 064
     Dates: start: 20101126, end: 20110104
  6. VOMEX A [Concomitant]
     Route: 064
     Dates: start: 20110107, end: 20110315
  7. CYMBALTA [Concomitant]
     Route: 064
     Dates: start: 20101126, end: 20110104
  8. TRUXAL [Concomitant]
     Route: 064
     Dates: start: 20101126, end: 20110104
  9. FEMIBION [Concomitant]
     Route: 064

REACTIONS (2)
  - NEONATAL RESPIRATORY DISTRESS SYNDROME [None]
  - DRUG WITHDRAWAL SYNDROME NEONATAL [None]
